FAERS Safety Report 11427440 (Version 1)
Quarter: 2015Q3

REPORT INFORMATION
  Report Type: Spontaneous
  Country: US (occurrence: US)
  Receive Date: 20150827
  Receipt Date: 20150827
  Transmission Date: 20151125
  Serious: No
  Sender: FDA-Public Use
  Company Number: US-SA-2015SA004763

PATIENT
  Age: 45 Year
  Sex: Female
  Weight: 102.28 kg

DRUGS (28)
  1. POTASSIUM CHLORIDE. [Concomitant]
     Active Substance: POTASSIUM CHLORIDE
  2. XANAX [Concomitant]
     Active Substance: ALPRAZOLAM
  3. LIDOCAINE. [Concomitant]
     Active Substance: LIDOCAINE
  4. WATER. [Concomitant]
     Active Substance: WATER
  5. EPIPEN [Concomitant]
     Active Substance: EPINEPHRINE
  6. GUAIFENESIN. [Concomitant]
     Active Substance: GUAIFENESIN
  7. CELEBREX [Concomitant]
     Active Substance: CELECOXIB
  8. TRILEPTAL [Concomitant]
     Active Substance: OXCARBAZEPINE
  9. MORPHINE [Concomitant]
     Active Substance: MORPHINE
  10. ASPIRIN. [Concomitant]
     Active Substance: ASPIRIN
  11. AMOXICILLIN. [Concomitant]
     Active Substance: AMOXICILLIN
  12. MOBIC [Concomitant]
     Active Substance: MELOXICAM
  13. FABRAZYME [Suspect]
     Active Substance: AGALSIDASE BETA
     Indication: FABRY^S DISEASE
     Route: 041
     Dates: start: 20110210
  14. ACETAMINOPHEN. [Concomitant]
     Active Substance: ACETAMINOPHEN
  15. HEPARIN [Concomitant]
     Active Substance: HEPARIN SODIUM
  16. NORMAL SALINE [Concomitant]
     Active Substance: SODIUM CHLORIDE
  17. PANTHENOL/RETINOL/THIAMINE HYDROCHLORIDE/ASCORBIC ACID/ERGOCALCIFEROL/FOLIC ACID/RIBOFLAVIN/NICOTINA [Concomitant]
  18. VITAMIN D [Concomitant]
     Active Substance: CHOLECALCIFEROL
  19. PRAVASTATIN [Concomitant]
     Active Substance: PRAVASTATIN\PRAVASTATIN SODIUM
  20. TOPAMAX [Concomitant]
     Active Substance: TOPIRAMATE
  21. DIPHENHYDRAMINE. [Concomitant]
     Active Substance: DIPHENHYDRAMINE
  22. CIPRO [Concomitant]
     Active Substance: CIPROFLOXACIN HYDROCHLORIDE
  23. ROXICODONE [Concomitant]
     Active Substance: OXYCODONE HYDROCHLORIDE
  24. DEXILANT [Concomitant]
     Active Substance: DEXLANSOPRAZOLE
  25. SOMA [Concomitant]
     Active Substance: CARISOPRODOL
  26. METOPROLOL TARTRATE. [Concomitant]
     Active Substance: METOPROLOL TARTRATE
  27. LEXAPRO [Concomitant]
     Active Substance: ESCITALOPRAM OXALATE
  28. SUDAFED [Concomitant]
     Active Substance: PSEUDOEPHEDRINE HYDROCHLORIDE

REACTIONS (1)
  - Burning sensation [Unknown]
